FAERS Safety Report 6120353-6 (Version None)
Quarter: 2009Q1

REPORT INFORMATION
  Report Type: 
  Country: None (occurrence: None)
  Receive Date: 20090312
  Receipt Date: 20090312
  Transmission Date: 20090719
  Serious: Yes (Other)
  Sender: FDA-Public Use
  Company Number: None

PATIENT
  Age: 36 Year
  Sex: Male

DRUGS (1)
  1. LEVAQUIN [Suspect]
     Indication: SINUSITIS
     Dosage: 750MG QD PO
     Route: 048
     Dates: start: 20090225, end: 20090305

REACTIONS (5)
  - ABNORMAL DREAMS [None]
  - DIZZINESS [None]
  - FATIGUE [None]
  - MUSCLE TIGHTNESS [None]
  - MYALGIA [None]
